FAERS Safety Report 5130021-5 (Version None)
Quarter: 2006Q4

REPORT INFORMATION
  Report Type: 
  Country: None (occurrence: None)
  Receive Date: 20061013
  Receipt Date: 20061002
  Transmission Date: 20070319
  Serious: Yes (Other)
  Sender: FDA-Public Use
  Company Number: 2006121019

PATIENT
  Age: 35 Year
  Sex: Female

DRUGS (6)
  1. CABERGOLINE [Suspect]
     Indication: PARKINSON'S DISEASE
     Dosage: 2 MG
     Dates: start: 20020101
  2. MADOPAR (BENSERAZIDE HYDROCHLORIDE, LEVODOPA) [Suspect]
     Indication: PARKINSON'S DISEASE
     Dosage: 125 MG
     Dates: start: 20060616
  3. ORPHENADRINE CITRATE [Suspect]
     Indication: PARKINSON'S DISEASE
     Dosage: 100 MG (50 MG, 2 IN 1 D)
     Dates: start: 20030101
  4. STALEVO 100 [Suspect]
     Indication: PARKINSON'S DISEASE
     Dates: start: 20060220
  5. FOLIC ACID [Concomitant]
  6. GAVISCON [Concomitant]

REACTIONS (4)
  - DRUG EXPOSURE BEFORE PREGNANCY [None]
  - NAUSEA [None]
  - PREMATURE LABOUR [None]
  - VOMITING [None]
